FAERS Safety Report 12746048 (Version 1)
Quarter: 2016Q3

REPORT INFORMATION
  Report Type: Spontaneous
  Country: BR (occurrence: BR)
  Receive Date: 20160915
  Receipt Date: 20160915
  Transmission Date: 20161109
  Serious: Yes (Other)
  Sender: FDA-Public Use
  Company Number: BR-PFIZER INC-2016424177

PATIENT
  Age: 27 Year
  Sex: Female

DRUGS (1)
  1. GEODON [Suspect]
     Active Substance: ZIPRASIDONE HYDROCHLORIDE\ZIPRASIDONE MESYLATE
     Indication: SCHIZOPHRENIA
     Dosage: 160 MG (2 TABLETS OF 80 MG), DAILY
     Route: 048
     Dates: start: 2014

REACTIONS (1)
  - Suicidal ideation [Unknown]
